FAERS Safety Report 17796464 (Version 2)
Quarter: 2020Q2

REPORT INFORMATION
  Report Type: Spontaneous
  Country: GB (occurrence: GB)
  Receive Date: 20200518
  Receipt Date: 20200630
  Transmission Date: 20200714
  Serious: Yes (Life-Threatening, Hospitalization, Other)
  Sender: FDA-Public Use
  Company Number: GB-AUROBINDO-AUR-APL-2020-023907

PATIENT
  Age: 52 Year
  Sex: Male

DRUGS (8)
  1. METRONIDAZOLE. [Suspect]
     Active Substance: METRONIDAZOLE
     Indication: CLOSTRIDIUM DIFFICILE COLITIS
     Dosage: UNK
     Route: 065
  2. METHYLPREDNISOLONE. [Suspect]
     Active Substance: METHYLPREDNISOLONE
     Indication: COLITIS ULCERATIVE
  3. ADALIMUMAB [Suspect]
     Active Substance: ADALIMUMAB
     Indication: PSORIASIS
     Dosage: UNK
     Route: 065
  4. COSENTYX [Suspect]
     Active Substance: SECUKINUMAB
     Indication: PSORIASIS
     Dosage: 300 MILLIGRAM (MONTHLY)
     Route: 058
     Dates: start: 201706
  5. METHYLPREDNISOLONE. [Suspect]
     Active Substance: METHYLPREDNISOLONE
     Indication: CLOSTRIDIUM DIFFICILE COLITIS
     Dosage: 40 MILLIGRAM, TWO TIMES A DAY
     Route: 042
  6. METRONIDAZOLE. [Suspect]
     Active Substance: METRONIDAZOLE
     Indication: COLITIS ULCERATIVE
  7. METRONIDAZOLE. [Suspect]
     Active Substance: METRONIDAZOLE
     Indication: CLOSTRIDIUM DIFFICILE INFECTION
  8. MESALAZINE [Concomitant]
     Active Substance: MESALAMINE
     Indication: COLITIS ULCERATIVE
     Dosage: UNK
     Route: 065

REACTIONS (8)
  - C-reactive protein increased [Recovered/Resolved]
  - Drug ineffective [Recovered/Resolved]
  - Colitis ulcerative [Recovered/Resolved]
  - Colitis [Recovered/Resolved]
  - Loss of consciousness [Recovered/Resolved]
  - Condition aggravated [Recovered/Resolved]
  - Clostridium difficile infection [Recovered/Resolved]
  - Megacolon [Recovered/Resolved]

NARRATIVE: CASE EVENT DATE: 2006
